FAERS Safety Report 6516815-X (Version None)
Quarter: 2009Q4

REPORT INFORMATION
  Report Type: 
  Country: None (occurrence: None)
  Receive Date: 20091223
  Receipt Date: 20091210
  Transmission Date: 20100525
  Serious: Yes (Other)
  Sender: FDA-Public Use
  Company Number: CH-ASTRAZENECA-2009SE32851

PATIENT
  Age: 25 Year
  Sex: Female

DRUGS (8)
  1. OMEPRAZOLE [Suspect]
     Route: 048
  2. BUSCOPAN [Suspect]
     Dates: start: 20090101
  3. CIPROXIN [Suspect]
     Route: 065
     Dates: start: 20090414, end: 20090420
  4. CITALOPRAM HYDROBROMIDE [Suspect]
     Indication: DEPRESSION
  5. IRFEN [Suspect]
  6. LYRICA [Suspect]
     Indication: DEPRESSION
  7. MELODEN [Suspect]
     Indication: ORAL CONTRACEPTION
     Route: 048
  8. MYDOCALM [Suspect]
     Indication: DEPRESSION

REACTIONS (3)
  - ABORTION INDUCED [None]
  - DRUG EXPOSURE DURING PREGNANCY [None]
  - DRUG INEFFECTIVE [None]
